FAERS Safety Report 6626231-8 (Version None)
Quarter: 2010Q1

REPORT INFORMATION
  Report Type: 
  Country: None (occurrence: None)
  Receive Date: 20100310
  Receipt Date: 20100305
  Transmission Date: 20100710
  Serious: Yes (Death)
  Sender: FDA-Public Use
  Company Number: US-CELGENEUS-163-20785-10030853

PATIENT
  Sex: Female

DRUGS (9)
  1. THALOMID [Suspect]
     Indication: MULTIPLE MYELOMA
     Route: 048
     Dates: start: 20090801
  2. THALOMID [Suspect]
     Route: 048
     Dates: start: 20080801, end: 20090101
  3. THALOMID [Suspect]
     Route: 048
     Dates: start: 20061201, end: 20070101
  4. THALOMID [Suspect]
     Route: 048
     Dates: start: 20050401
  5. THALOMID [Suspect]
     Route: 048
     Dates: start: 20031001
  6. THALOMID [Suspect]
     Route: 048
     Dates: start: 20011101
  7. REVLIMID [Suspect]
     Indication: MULTIPLE MYELOMA
     Route: 048
     Dates: start: 20060801, end: 20060101
  8. REVLIMID [Suspect]
     Route: 048
     Dates: start: 20080501, end: 20080101
  9. REVLIMID [Suspect]
     Route: 048
     Dates: start: 20090501, end: 20090101

REACTIONS (1)
  - DEATH [None]
